FAERS Safety Report 11364592 (Version 1)
Quarter: 2015Q3

REPORT INFORMATION
  Report Type: Spontaneous
  Country: US (occurrence: None)
  Receive Date: 20150810
  Receipt Date: 20150810
  Transmission Date: 20151125
  Serious: Yes (Other)
  Sender: FDA-Public Use
  Company Number: None

PATIENT
  Age: 10 Day
  Sex: Female
  Weight: 60.78 kg

DRUGS (7)
  1. SERTRALINE 50MG [Suspect]
     Active Substance: SERTRALINE HYDROCHLORIDE
  2. GABAPENTIN. [Concomitant]
     Active Substance: GABAPENTIN
  3. LURASIDONE [Suspect]
     Active Substance: LURASIDONE
     Dosage: 1-TAB EACH DAY 20MG. 2M. L-TA
     Route: 048
     Dates: start: 20150723, end: 20150807
  4. CYCLOBENZAPRINE HCL [Concomitant]
     Active Substance: CYCLOBENZAPRINE HYDROCHLORIDE
  5. ADVIL [Concomitant]
     Active Substance: IBUPROFEN
  6. ABILIFY [Suspect]
     Active Substance: ARIPIPRAZOLE
  7. OMEPRAZOLE. [Concomitant]
     Active Substance: OMEPRAZOLE

REACTIONS (10)
  - Abnormal behaviour [None]
  - Memory impairment [None]
  - Dry mouth [None]
  - Dysarthria [None]
  - Confusional state [None]
  - Anxiety [None]
  - Drooling [None]
  - Thinking abnormal [None]
  - Muscle disorder [None]
  - Insomnia [None]

NARRATIVE: CASE EVENT DATE: 20150723
